FAERS Safety Report 9364078 (Version 6)
Quarter: 2014Q3

REPORT INFORMATION
  Report Type: Spontaneous
  Country: US (occurrence: US)
  Receive Date: 20130624
  Receipt Date: 20140822
  Transmission Date: 20150326
  Serious: Yes (Hospitalization, Disabling, Other)
  Sender: FDA-Public Use
  Company Number: US-009507513-1306USA008258

PATIENT
  Sex: Male
  Weight: 75.74 kg

DRUGS (4)
  1. ALENDRONATE SODIUM. [Suspect]
     Active Substance: ALENDRONATE SODIUM
     Indication: OSTEOPENIA
  2. FOSAMAX [Suspect]
     Active Substance: ALENDRONATE SODIUM
     Indication: OSTEOPOROSIS
     Dosage: 10 MG, UNK
     Route: 048
     Dates: start: 1998, end: 200010
  3. FOSAMAX [Suspect]
     Active Substance: ALENDRONATE SODIUM
     Indication: OSTEOPENIA
     Dosage: 70 MG, QW
     Route: 048
     Dates: start: 200010
  4. ALENDRONATE SODIUM. [Suspect]
     Active Substance: ALENDRONATE SODIUM
     Indication: OSTEOPOROSIS
     Dosage: 70 MG, UNK
     Route: 048
     Dates: start: 20080219

REACTIONS (66)
  - Splenectomy [Unknown]
  - Deafness [Unknown]
  - Radical neck dissection [Unknown]
  - Dizziness postural [Unknown]
  - Cardiomyopathy [Unknown]
  - Basal cell carcinoma [Unknown]
  - Haematoma [Unknown]
  - Cardiac murmur [Unknown]
  - Delayed recovery from anaesthesia [Unknown]
  - Left ventricular dysfunction [Unknown]
  - Respiratory disorder [Unknown]
  - Dental prosthesis placement [Unknown]
  - Cellulitis [Unknown]
  - Thrombosis [Unknown]
  - Osteonecrosis of jaw [Not Recovered/Not Resolved]
  - Weight decreased [Unknown]
  - Arrhythmia [Unknown]
  - Intracranial aneurysm [Unknown]
  - Abnormal loss of weight [Unknown]
  - Ventricular extrasystoles [Unknown]
  - Scar [Unknown]
  - Palpitations [Unknown]
  - Photosensitivity reaction [Unknown]
  - Pulmonary contusion [Unknown]
  - Haemorrhage [Unknown]
  - Barrett^s oesophagus [Unknown]
  - Epistaxis [Unknown]
  - Decreased appetite [Unknown]
  - Night sweats [Unknown]
  - Cataract [Unknown]
  - Aortic stenosis [Unknown]
  - Bone lesion excision [Unknown]
  - Rib fracture [Unknown]
  - Bacterial infection [Unknown]
  - Impaired healing [Unknown]
  - Tooth abscess [Unknown]
  - Cardiac aneurysm [Unknown]
  - Porphyria non-acute [Unknown]
  - Otitis externa [Unknown]
  - Diarrhoea [Unknown]
  - Gastrooesophageal reflux disease [Unknown]
  - Abscess [Unknown]
  - Abscess oral [Unknown]
  - Skin neoplasm excision [Unknown]
  - Fistula discharge [Unknown]
  - Benign prostatic hyperplasia [Unknown]
  - Spinal osteoarthritis [Unknown]
  - Osteoarthritis [Unknown]
  - Chest pain [Unknown]
  - Odynophagia [Unknown]
  - Malignant melanoma [Unknown]
  - Squamous cell carcinoma [Unknown]
  - Fall [Unknown]
  - Trismus [Unknown]
  - Anaesthesia dolorosa [Unknown]
  - Nocturia [Unknown]
  - Cardiac valve disease [Unknown]
  - Dental operation [Unknown]
  - Hypoaesthesia [Unknown]
  - Hypotension [Unknown]
  - Oral disorder [Unknown]
  - Tachycardia [Unknown]
  - Gastric disorder [Unknown]
  - Therapeutic embolisation [Unknown]
  - Tooth infection [Unknown]
  - Gingival disorder [Unknown]

NARRATIVE: CASE EVENT DATE: 20000206
